FAERS Safety Report 5228462-0 (Version None)
Quarter: 2007Q1

REPORT INFORMATION
  Report Type: 
  Country: None (occurrence: None)
  Receive Date: 20070131
  Receipt Date: 20070117
  Transmission Date: 20070707
  Serious: Yes (Other)
  Sender: FDA-Public Use
  Company Number: 2006EU003262

PATIENT
  Age: 31 Year
  Sex: Female

DRUGS (1)
  1. PROTOPIC [Suspect]
     Indication: DERMATITIS ATOPIC
     Dosage: 0.1%, UNKNOWN/D, TOPICAL
     Route: 061
     Dates: start: 20060101, end: 20060901

REACTIONS (2)
  - GRANULOMA SKIN [None]
  - PULMONARY SARCOIDOSIS [None]
